FAERS Safety Report 11886997 (Version 3)
Quarter: 2016Q1

REPORT INFORMATION
  Report Type: Report from Study
  Country: TN (occurrence: TN)
  Receive Date: 20160104
  Receipt Date: 20160205
  Transmission Date: 20160526
  Serious: Yes (Death, Hospitalization)
  Sender: FDA-Public Use
  Company Number: TN-ABBVIE-15P-160-1527986-00

PATIENT
  Age: 53 Year
  Sex: Female
  Weight: 81 kg

DRUGS (11)
  1. VALSARTAN AND HYDROCHLOROTHIAZIDE [Concomitant]
     Active Substance: HYDROCHLOROTHIAZIDE\VALSARTAN
     Indication: HYPERTENSION
     Route: 048
     Dates: start: 2002, end: 2016
  2. OMBITASVIR/PARITAPREVIR/RITONAVIR [Suspect]
     Active Substance: OMBITASVIR\PARITAPREVIR\RITONAVIR
     Indication: HEPATITIS C
     Route: 048
     Dates: start: 20151111, end: 20160117
  3. INSULIN [Concomitant]
     Active Substance: INSULIN NOS
     Indication: DIABETES MELLITUS
     Route: 058
     Dates: start: 2002, end: 201601
  4. RIBAVIRINE [Concomitant]
     Active Substance: RIBAVIRIN
     Indication: HEPATITIS C
     Route: 048
     Dates: start: 201511, end: 201601
  5. PREDNISONE. [Concomitant]
     Active Substance: PREDNISONE
     Indication: AUTOIMMUNE HEPATITIS
     Route: 048
     Dates: start: 20150615, end: 201601
  6. CALPEROS [Concomitant]
     Active Substance: CALCIUM CARBONATE
     Indication: AUTOIMMUNE HEPATITIS
     Route: 048
     Dates: start: 20150615, end: 201601
  7. STEROGYL [Concomitant]
     Active Substance: ERGOCALCIFEROL
     Indication: AUTOIMMUNE HEPATITIS
     Dosage: 4 DROPS
     Route: 048
     Dates: start: 20150615, end: 201601
  8. VITAMIN E [Concomitant]
     Active Substance: .ALPHA.-TOCOPHEROL
     Indication: PRODUCT USED FOR UNKNOWN INDICATION
     Route: 048
     Dates: start: 2014, end: 201601
  9. DASABUVIR [Suspect]
     Active Substance: DASABUVIR
     Indication: HEPATITIS C
     Route: 048
     Dates: start: 20151111, end: 20160117
  10. VALSARTAN. [Concomitant]
     Active Substance: VALSARTAN
     Indication: HYPERTENSION
     Route: 048
     Dates: start: 2002, end: 20151219
  11. ASPEGIC [Concomitant]
     Active Substance: ASPIRIN DL-LYSINE
     Indication: HYPERTENSION
     Route: 048
     Dates: start: 2002, end: 201601

REACTIONS (14)
  - Vomiting [Recovered/Resolved]
  - Asthenia [Recovered/Resolved]
  - Shock [Fatal]
  - Autoimmune hepatitis [Fatal]
  - Hypokalaemia [Recovered/Resolved]
  - Disorientation [Recovered/Resolved]
  - Acidosis [Fatal]
  - Asthenia [Fatal]
  - Tachycardia [Fatal]
  - Lactic acidosis [Fatal]
  - Hepatic failure [Fatal]
  - Dyspnoea exertional [Fatal]
  - Hyponatraemia [Recovered/Resolved]
  - Hypoxia [Fatal]

NARRATIVE: CASE EVENT DATE: 20151219
